FAERS Safety Report 8111669-2 (Version None)
Quarter: 2012Q1

REPORT INFORMATION
  Report Type: 
  Country: None (occurrence: None)
  Receive Date: 20120203
  Receipt Date: 20120127
  Transmission Date: 20120608
  Serious: Yes (Other)
  Sender: FDA-Public Use
  Company Number: US-JNJFOC-20120112716

PATIENT
  Sex: Female
  Weight: 83.92 kg

DRUGS (2)
  1. TRAMADOL HCL [Suspect]
     Indication: PAIN
     Dosage: AS NEEDED
     Route: 048
  2. ULTRAM [Suspect]
     Indication: PAIN
     Dosage: AS NEEDED
     Route: 048

REACTIONS (7)
  - PRURITUS [None]
  - THROAT TIGHTNESS [None]
  - RHEUMATOID ARTHRITIS [None]
  - EAR DISORDER [None]
  - COUGH [None]
  - DYSPNOEA [None]
  - URTICARIA [None]
